FAERS Safety Report 6012471-8 (Version None)
Quarter: 2008Q4

REPORT INFORMATION
  Report Type: 
  Country: None (occurrence: None)
  Receive Date: 20081218
  Receipt Date: 20081203
  Transmission Date: 20090506
  Serious: Yes (Other)
  Sender: FDA-Public Use
  Company Number: IE-GENENTECH-272775

PATIENT
  Sex: Female

DRUGS (1)
  1. XOLAIR [Suspect]
     Indication: DRUG USE FOR UNKNOWN INDICATION
     Dosage: 300 MG, 2/WEEK
     Route: 058
     Dates: start: 20080813, end: 20081121

REACTIONS (3)
  - BLOOD PRESSURE DECREASED [None]
  - INJECTION SITE ERYTHEMA [None]
  - WHEEZING [None]
